FAERS Safety Report 6943329-5 (Version None)
Quarter: 2010Q3

REPORT INFORMATION
  Report Type: 
  Country: None (occurrence: None)
  Receive Date: 20100826
  Receipt Date: 20100818
  Transmission Date: 20110219
  Serious: Yes (Hospitalization)
  Sender: FDA-Public Use
  Company Number: FR-BAXTER-2010BH017144

PATIENT
  Age: 51 Year
  Sex: Male

DRUGS (4)
  1. HOLOXAN BAXTER [Suspect]
     Indication: LUNG ADENOCARCINOMA
     Route: 042
     Dates: start: 20100614, end: 20100614
  2. NAVELBINE [Suspect]
     Indication: LUNG ADENOCARCINOMA
     Route: 042
     Dates: start: 20100614, end: 20100614
  3. NAVELBINE [Suspect]
     Route: 042
     Dates: start: 20100301
  4. HOLOXAN BAXTER [Suspect]
     Route: 042
     Dates: start: 20100301

REACTIONS (1)
  - CEREBELLAR SYNDROME [None]
